FAERS Safety Report 19893327 (Version 2)
Quarter: 2021Q4

REPORT INFORMATION
  Report Type: Other
  Country: KR (occurrence: KR)
  Receive Date: 20210929
  Receipt Date: 20211003
  Transmission Date: 20220303
  Serious: No
  Sender: FDA-Public Use
  Company Number: KR-WORLDWIDE CLINICAL TRIALS-2021KP000832

PATIENT
  Age: 72 Year
  Sex: Male
  Weight: 49.15 kg

DRUGS (1)
  1. RIPRETINIB [Suspect]
     Active Substance: RIPRETINIB
     Indication: Gastrointestinal stromal tumour
     Dosage: 150 MILLIGRAM, QD
     Route: 065
     Dates: start: 20210902

REACTIONS (1)
  - Thrombocytopenia [Not Recovered/Not Resolved]

NARRATIVE: CASE EVENT DATE: 20210916
